FAERS Safety Report 7589975-X (Version None)
Quarter: 2011Q3

REPORT INFORMATION
  Report Type: 
  Country: None (occurrence: None)
  Receive Date: 20110705
  Receipt Date: 20110624
  Transmission Date: 20111222
  Serious: Yes (Death)
  Sender: FDA-Public Use
  Company Number: A0886515A

PATIENT
  Age: 56 Year
  Sex: Female

DRUGS (1)
  1. AVANDIA [Suspect]
     Dosage: 8MG PER DAY
     Route: 048
     Dates: start: 20010101, end: 20081108

REACTIONS (4)
  - ARTERIOSCLEROSIS [None]
  - PNEUMONIA NECROTISING [None]
  - PNEUMONIA ASPIRATION [None]
  - LEFT VENTRICULAR HYPERTROPHY [None]
